FAERS Safety Report 16367847 (Version 5)
Quarter: 2019Q3

REPORT INFORMATION
  Report Type: Spontaneous
  Country: HK (occurrence: HK)
  Receive Date: 20190529
  Receipt Date: 20190703
  Transmission Date: 20191004
  Serious: Yes (Hospitalization, Other)
  Sender: FDA-Public Use
  Company Number: HK-PFIZER INC-2019220229

PATIENT
  Age: 89 Year
  Sex: Female

DRUGS (2)
  1. GABAPENTIN. [Suspect]
     Active Substance: GABAPENTIN
     Indication: ALLODYNIA
     Dosage: UNK
     Route: 048
  2. GABAPENTIN. [Suspect]
     Active Substance: GABAPENTIN
     Dosage: 300 MG, 3X/DAY

REACTIONS (3)
  - Dysphagia [Recovered/Resolved]
  - Myoclonus [Recovered/Resolved]
  - Toxicity to various agents [Recovered/Resolved]
